FAERS Safety Report 8484684-7 (Version None)
Quarter: 2012Q3

REPORT INFORMATION
  Report Type: 
  Country: None (occurrence: None)
  Receive Date: 20120703
  Receipt Date: 20120515
  Transmission Date: 20120928
  Serious: No
  Sender: FDA-Public Use
  Company Number: US-TEVA-335521USA

PATIENT
  Age: 35 Year
  Sex: Female

DRUGS (1)
  1. NUVIGIL [Suspect]
     Indication: ATTENTION DEFICIT/HYPERACTIVITY DISORDER
     Route: 048
     Dates: end: 20120425

REACTIONS (4)
  - BLISTER [None]
  - INTENTIONAL DRUG MISUSE [None]
  - RASH [None]
  - OFF LABEL USE [None]
